FAERS Safety Report 7061186-6 (Version None)
Quarter: 2010Q4

REPORT INFORMATION
  Report Type: 
  Country: None (occurrence: None)
  Receive Date: 20101026
  Receipt Date: 20101012
  Transmission Date: 20110411
  Serious: Yes (Other)
  Sender: FDA-Public Use
  Company Number: AU-WYE-G06669910

PATIENT
  Age: 38 Year
  Sex: Male
  Weight: 94 kg

DRUGS (1)
  1. PRISTIQ [Suspect]
     Indication: MAJOR DEPRESSION
     Dosage: 50MG ONE IN THE MORNING
     Route: 048
     Dates: start: 20090525, end: 20090617

REACTIONS (3)
  - ANORGASMIA [None]
  - ATAXIA [None]
  - ERECTILE DYSFUNCTION [None]
